FAERS Safety Report 4386489-5 (Version None)
Quarter: 2004Q2

REPORT INFORMATION
  Report Type: 
  Country: None (occurrence: None)
  Receive Date: 20040623
  Receipt Date: 20040525
  Transmission Date: 20050107
  Serious: Yes (Hospitalization)
  Sender: FDA-Public Use
  Company Number: 2004S1000122

PATIENT
  Age: 54 Year
  Sex: Female
  Weight: 79 kg

DRUGS (3)
  1. CUBICIN [Suspect]
     Indication: ARTHRITIS BACTERIAL
     Dosage: 300 MG; Q24H; IV
     Route: 042
     Dates: start: 20040519
  2. FLUCONAZOLE [Concomitant]
  3. CEFEPIME [Concomitant]

REACTIONS (4)
  - BLOOD CREATININE INCREASED [None]
  - INTESTINAL PERFORATION [None]
  - LIVER FUNCTION TEST ABNORMAL [None]
  - SEPSIS [None]
